FAERS Safety Report 5774491 (Version 3)
Quarter: 2013Q2

REPORT INFORMATION
  Report Type: Spontaneous
  Country: FR (occurrence: FR)
  Receive Date: 20050413
  Receipt Date: 20130627
  Transmission Date: 20140414
  Serious: Yes (Hospitalization, Other)
  Sender: FDA-Public Use
  Company Number: FR-RB-1455-2005

PATIENT
  Age: 31 Year
  Sex: Male

DRUGS (4)
  1. SUBUTEX [Suspect]
     Indication: DRUG WITHDRAWAL MAINTENANCE THERAPY
     Route: 060
     Dates: end: 199803
  2. PARACETAMOL [Suspect]
     Indication: PRODUCT USED FOR UNKNOWN INDICATION
     Route: 048
  3. ASPIRIN [Suspect]
     Indication: PRODUCT USED FOR UNKNOWN INDICATION
     Route: 048
  4. FLUNITRAZEPAM [Concomitant]
     Indication: PRODUCT USED FOR UNKNOWN INDICATION
     Route: 065

REACTIONS (8)
  - Hepatitis [Unknown]
  - Hepatic necrosis [Unknown]
  - Asterixis [Unknown]
  - Jaundice [Unknown]
  - Reye^s syndrome [Unknown]
  - Asthenia [Unknown]
  - Hepatic encephalopathy [Unknown]
  - HIV infection [Not Recovered/Not Resolved]
